FAERS Safety Report 7712389-6 (Version None)
Quarter: 2011Q3

REPORT INFORMATION
  Report Type: 
  Country: None (occurrence: None)
  Receive Date: 20110826
  Receipt Date: 20110823
  Transmission Date: 20111222
  Serious: Yes (Other)
  Sender: FDA-Public Use
  Company Number: AU-ROCHE-798360

PATIENT
  Sex: Female

DRUGS (2)
  1. TENOFOVIR DISOPROXIL FUMARATE [Concomitant]
     Indication: HEPATITIS B
  2. PEGASYS [Suspect]
     Indication: HEPATITIS B
     Dosage: DRUG REPORTED AS PEGASYS RBV
     Route: 065

REACTIONS (1)
  - HEPATIC NEOPLASM [None]
